FAERS Safety Report 9258896 (Version 1)
Quarter: 2013Q2

REPORT INFORMATION
  Report Type: Spontaneous
  Country: US (occurrence: US)
  Receive Date: 20130426
  Receipt Date: 20130426
  Transmission Date: 20140414
  Serious: Yes (Hospitalization)
  Sender: FDA-Public Use
  Company Number: US-BAYER-2013-051751

PATIENT
  Age: 48 Year
  Sex: Female
  Weight: 88 kg

DRUGS (5)
  1. YASMIN [Suspect]
  2. YAZ [Suspect]
  3. OCELLA [Suspect]
  4. GIANVI [Suspect]
  5. LEXAPRO [Concomitant]
     Dosage: 10 MG, UNK

REACTIONS (2)
  - Cerebral infarction [None]
  - Ischaemic stroke [None]
